FAERS Safety Report 18702277 (Version 1)
Quarter: 2021Q1

REPORT INFORMATION
  Report Type: Spontaneous
  Country: US (occurrence: US)
  Receive Date: 20210105
  Receipt Date: 20210105
  Transmission Date: 20210419
  Serious: Yes (Hospitalization, Other)
  Sender: FDA-Public Use
  Company Number: US-HIKMA PHARMACEUTICALS USA INC.-US-H14001-20-53088

PATIENT
  Age: 75 Year
  Sex: Male

DRUGS (1)
  1. CAPECITABINE. [Suspect]
     Active Substance: CAPECITABINE
     Indication: RECTAL CANCER
     Route: 065

REACTIONS (10)
  - Corynebacterium infection [Recovered/Resolved]
  - Staphylococcal infection [Recovered/Resolved]
  - Proteus infection [Recovered/Resolved]
  - Myelosuppression [Recovered/Resolved]
  - Alpha haemolytic streptococcal infection [Recovered/Resolved]
  - Bacteraemia [Recovered/Resolved]
  - Diabetic foot [Recovered/Resolved]
  - Enterococcal infection [Recovered/Resolved]
  - Staphylococcal osteomyelitis [Recovered/Resolved]
  - Osteomyelitis [Recovered/Resolved]
